FAERS Safety Report 7344917-7 (Version None)
Quarter: 2011Q1

REPORT INFORMATION
  Report Type: 
  Country: None (occurrence: None)
  Receive Date: 20110310
  Receipt Date: 20110301
  Transmission Date: 20110831
  Serious: Yes (Hospitalization)
  Sender: FDA-Public Use
  Company Number: US-ASTRAZENECA-2011SE11399

PATIENT
  Age: 63 Year
  Sex: Male

DRUGS (2)
  1. ATACAND [Concomitant]
  2. CRESTOR [Suspect]
     Route: 048

REACTIONS (1)
  - CORONARY ARTERY BYPASS [None]
